FAERS Safety Report 6992396-1 (Version None)
Quarter: 2010Q3

REPORT INFORMATION
  Report Type: 
  Country: None (occurrence: None)
  Receive Date: 20100917
  Receipt Date: 20100909
  Transmission Date: 20110219
  Serious: Yes (Other)
  Sender: FDA-Public Use
  Company Number: BR-PFIZER INC-2010081518

PATIENT
  Age: 35 Year
  Sex: Female
  Weight: 77 kg

DRUGS (3)
  1. CHAMPIX [Suspect]
     Indication: TOBACCO USER
     Dosage: UNK
     Route: 048
     Dates: start: 20100602
  2. CHAMPIX [Suspect]
     Dosage: 1 MG, 2X/DAY
     Route: 048
  3. BUSPIRONE HYDROCHLORIDE [Concomitant]
     Indication: IRRITABILITY
     Dosage: 10 MG, 1X/DAY

REACTIONS (2)
  - HYPERTENSION [None]
  - NERVOUSNESS [None]
